FAERS Safety Report 18500929 (Version 1)
Quarter: 2020Q4

REPORT INFORMATION
  Report Type: Report from Study
  Country: BR (occurrence: BR)
  Receive Date: 20201113
  Receipt Date: 20201113
  Transmission Date: 20210114
  Serious: Yes (Death)
  Sender: FDA-Public Use
  Company Number: BR-MYLANLABS-2020M1094499

PATIENT

DRUGS (1)
  1. OXACILLIN [Suspect]
     Active Substance: OXACILLIN SODIUM
     Indication: ANTI-INFECTIVE THERAPY
     Dosage: UNK
     Route: 065

REACTIONS (1)
  - Skin disorder [Fatal]
